FAERS Safety Report 11945199 (Version 1)
Quarter: 2016Q1

REPORT INFORMATION
  Report Type: Spontaneous
  Country: RS (occurrence: RS)
  Receive Date: 20160125
  Receipt Date: 20160125
  Transmission Date: 20160526
  Serious: Yes (Death, Hospitalization)
  Sender: FDA-Public Use
  Company Number: PHHY2016RS005143

PATIENT
  Age: 24 Year
  Sex: Female

DRUGS (4)
  1. GLICLAZIDE [Suspect]
     Active Substance: GLICLAZIDE
     Indication: PRODUCT USED FOR UNKNOWN INDICATION
     Dosage: 2.4 G, (30 TABLETS)
     Route: 065
  2. INSULIN [Concomitant]
     Active Substance: INSULIN NOS
     Indication: PRODUCT USED FOR UNKNOWN INDICATION
     Route: 065
  3. METFORMIN [Suspect]
     Active Substance: METFORMIN HYDROCHLORIDE
     Indication: PRODUCT USED FOR UNKNOWN INDICATION
     Dosage: 10 G, (20 TABLETS)
     Route: 065
  4. AMLODIPINE [Suspect]
     Active Substance: AMLODIPINE BESYLATE
     Indication: PRODUCT USED FOR UNKNOWN INDICATION
     Dosage: 150 MG, (30 TABLETS)
     Route: 065

REACTIONS (9)
  - Atrioventricular block first degree [Fatal]
  - Cardiac arrest [Fatal]
  - Sinus tachycardia [Fatal]
  - Bundle branch block right [Fatal]
  - Urine output decreased [Unknown]
  - Toxicity to various agents [Unknown]
  - Hypotension [Fatal]
  - Electrocardiogram ST segment depression [Fatal]
  - Intentional overdose [Fatal]
